FAERS Safety Report 22621914 (Version 1)
Quarter: 2023Q2

REPORT INFORMATION
  Report Type: Spontaneous
  Country: CO (occurrence: CO)
  Receive Date: 20230620
  Receipt Date: 20230620
  Transmission Date: 20230721
  Serious: Yes (Hospitalization, Other)
  Sender: FDA-Public Use
  Company Number: CO-MYLANLABS-2023M1063248

PATIENT
  Age: 11 Year
  Sex: Female
  Weight: 11.2 kg

DRUGS (5)
  1. CYSTEAMINE [Suspect]
     Active Substance: CYSTEAMINE
     Indication: Product used for unknown indication
     Dosage: UNK
     Route: 065
  2. CALCITRIOL [Concomitant]
     Active Substance: CALCITRIOL
     Dosage: 0.50 MICROGRAM, QD
     Route: 048
  3. CYANOCOBALAMIN\FOLIC ACID\PYRIDOXINE HYDROCHLORIDE [Concomitant]
     Active Substance: CYANOCOBALAMIN\FOLIC ACID\PYRIDOXINE HYDROCHLORIDE
     Dosage: 1 MILLIGRAM, QD
     Route: 048
  4. SULFATO FERROSO [Concomitant]
     Dosage: 24 GOTAS, TWICE A DAY (BID)
     Route: 048
  5. ERYTHROPOIETIN [Concomitant]
     Active Substance: ERYTHROPOIETIN
     Indication: Nephropathy
     Dosage: 200 INTERNATIONAL UNIT, QD
     Route: 058

REACTIONS (2)
  - Cholecystitis [Recovered/Resolved]
  - Blood pressure increased [Recovered/Resolved]

NARRATIVE: CASE EVENT DATE: 20230528
